FAERS Safety Report 8922026 (Version 1)
Quarter: 2012Q4

REPORT INFORMATION
  Report Type: Spontaneous
  Country: US (occurrence: None)
  Receive Date: 20121120
  Receipt Date: 20121120
  Transmission Date: 20130627
  Serious: Yes (Other)
  Sender: FDA-Public Use
  Company Number: None

PATIENT
  Age: 32 Year
  Sex: Female
  Weight: 67.13 kg

DRUGS (2)
  1. AZITHROMYCIN [Suspect]
     Indication: RHINITIS
     Dosage: 250MG 1 A DAY
     Dates: start: 20121112, end: 20121116
  2. AZITHROMYCIN [Suspect]
     Indication: SINUSITIS
     Dosage: 250MG 1 A DAY
     Dates: start: 20121112, end: 20121116

REACTIONS (3)
  - Nausea [None]
  - Abdominal discomfort [None]
  - Diarrhoea [None]
